FAERS Safety Report 6609912-1 (Version None)
Quarter: 2010Q1

REPORT INFORMATION
  Report Type: 
  Country: None (occurrence: None)
  Receive Date: 20100302
  Receipt Date: 20100225
  Transmission Date: 20100710
  Serious: Yes (Death)
  Sender: FDA-Public Use
  Company Number: PHHY2010AU11074

PATIENT
  Age: 50 Year
  Sex: Male

DRUGS (3)
  1. CARBAMAZEPINE [Suspect]
  2. FLUOXETINE [Suspect]
  3. ETHANOL [Suspect]

REACTIONS (3)
  - DRUG TOXICITY [None]
  - HEPATIC STEATOSIS [None]
  - SEROTONIN SYNDROME [None]
